FAERS Safety Report 7934028-1 (Version None)
Quarter: 2011Q4

REPORT INFORMATION
  Report Type: 
  Country: None (occurrence: None)
  Receive Date: 20111122
  Receipt Date: 20111117
  Transmission Date: 20120403
  Serious: Yes (Life-Threatening)
  Sender: FDA-Public Use
  Company Number: ES-ROCHE-771289

PATIENT
  Sex: Female
  Weight: 61.9 kg

DRUGS (9)
  1. AVASTIN [Suspect]
     Route: 042
  2. AMILORIDE HYDROCHLORIDE [Concomitant]
  3. SIMVASTATIN [Concomitant]
  4. OXALIPLATIN [Suspect]
     Indication: COLORECTAL CANCER
     Dosage: FORM: INFUSION. LAST DOSE PRIOR TO SAE: 08 APRIL 2011
     Route: 042
     Dates: start: 20100611, end: 20110410
  5. OXALIPLATIN [Suspect]
     Route: 042
  6. CAPTOPRIL [Concomitant]
  7. XELODA [Suspect]
     Indication: COLORECTAL CANCER
     Dosage: FREQUENCY: DAILY FOR 14 DAYS
     Route: 048
     Dates: start: 20100611, end: 20110410
  8. HIDROSMIN [Concomitant]
  9. AVASTIN [Suspect]
     Indication: COLORECTAL CANCER
     Dosage: FORM: VIAL. LAST DOSE PRIOR TO SAE: 08 APRIL 2011.FREQUENCY: 3 WEEKS
     Route: 042
     Dates: start: 20100611, end: 20110410

REACTIONS (2)
  - DUODENITIS [None]
  - HEPATITIS TOXIC [None]
